FAERS Safety Report 5747864-7 (Version None)
Quarter: 2008Q2

REPORT INFORMATION
  Report Type: 
  Country: None (occurrence: None)
  Receive Date: 20080523
  Receipt Date: 20080516
  Transmission Date: 20081010
  Serious: Yes (Hospitalization)
  Sender: FDA-Public Use
  Company Number: PL-MERCK-0805POL00008

PATIENT
  Age: 12 Year
  Sex: Female
  Weight: 28 kg

DRUGS (3)
  1. SINGULAIR [Suspect]
     Indication: HYPERSENSITIVITY
     Route: 048
     Dates: start: 20080514, end: 20080514
  2. SINGULAIR [Suspect]
     Indication: RHINITIS ALLERGIC
     Route: 048
     Dates: start: 20080514, end: 20080514
  3. LINCOMYCIN HYDROCHLORIDE [Concomitant]
     Route: 065

REACTIONS (7)
  - APATHY [None]
  - ASPARTATE AMINOTRANSFERASE INCREASED [None]
  - FACE OEDEMA [None]
  - OVERDOSE [None]
  - PALLOR [None]
  - PYREXIA [None]
  - SOMNOLENCE [None]
